FAERS Safety Report 6446816-1 (Version None)
Quarter: 2009Q4

REPORT INFORMATION
  Report Type: 
  Country: None (occurrence: None)
  Receive Date: 20091119
  Receipt Date: 20091112
  Transmission Date: 20100525
  Serious: Yes (Hospitalization)
  Sender: FDA-Public Use
  Company Number: PHHY2009FR50026

PATIENT
  Sex: Male

DRUGS (3)
  1. VOLTAREN [Suspect]
     Indication: ARTHRALGIA
  2. ASPIRIN [Suspect]
     Indication: HEADACHE
  3. NSAID'S [Concomitant]

REACTIONS (1)
  - MICROCYTIC ANAEMIA [None]
